FAERS Safety Report 24733481 (Version 2)
Quarter: 2024Q4

REPORT INFORMATION
  Report Type: Spontaneous
  Country: US (occurrence: US)
  Receive Date: 20241213
  Receipt Date: 20241220
  Transmission Date: 20250114
  Serious: No
  Sender: PHARMING GROUP
  Company Number: US-PHARMING-PHAUS2024001137

PATIENT

DRUGS (14)
  1. JOENJA [Suspect]
     Active Substance: LENIOLISIB PHOSPHATE
     Indication: Activated PI3 kinase delta syndrome
     Dosage: 70 MILLIGRAM, BID
     Route: 048
     Dates: start: 20230908
  2. ALBUTEROL [Concomitant]
     Active Substance: ALBUTEROL
     Indication: Product used for unknown indication
  3. AZITHROMYCIN [Concomitant]
     Active Substance: AZITHROMYCIN
     Indication: Product used for unknown indication
     Dosage: 250 MILLIGRAM, QD
     Route: 048
  4. BIOTIN                             /08249501/ [Concomitant]
     Indication: Product used for unknown indication
     Route: 048
  5. EVEROLIMUS [Concomitant]
     Active Substance: EVEROLIMUS
     Indication: Product used for unknown indication
     Route: 048
  6. HIZENTRA [Concomitant]
     Active Substance: HUMAN IMMUNOGLOBULIN G
     Indication: Product used for unknown indication
     Dosage: 30 MILLILITER
     Route: 058
  7. SODIUM CHLORIDE [Concomitant]
     Active Substance: SODIUM CHLORIDE
     Indication: Product used for unknown indication
  8. HUMAN IMMUNOGLOBULIN G [Concomitant]
     Active Substance: HUMAN IMMUNOGLOBULIN G
     Indication: Product used for unknown indication
     Route: 058
  9. ISOTRETINOIN [Concomitant]
     Active Substance: ISOTRETINOIN
     Indication: Product used for unknown indication
     Route: 048
  10. MAXITROL [Concomitant]
     Active Substance: DEXAMETHASONE\NEOMYCIN SULFATE\POLYMYXIN B SULFATE
     Indication: Product used for unknown indication
     Dosage: UNK UNK, PRN
     Route: 047
  11. MULTIVITAMIN                       /00097801/ [Concomitant]
     Indication: Product used for unknown indication
     Route: 048
  12. BIFIDOBACTERIUM ANIMALIS LACTIS [Concomitant]
     Active Substance: BIFIDOBACTERIUM ANIMALIS LACTIS
     Indication: Product used for unknown indication
     Route: 048
  13. SODIUM CHLORIDE [Concomitant]
     Active Substance: SODIUM CHLORIDE
     Indication: Product used for unknown indication
     Dosage: UNK, PRN
  14. VALACYCLOVIR                       /01269701/ [Concomitant]
     Indication: Product used for unknown indication
     Route: 048

REACTIONS (3)
  - Rash [Recovered/Resolved]
  - Acne [Recovered/Resolved]
  - Product dose omission issue [Recovered/Resolved]
